FAERS Safety Report 7346088-X (Version None)
Quarter: 2011Q1

REPORT INFORMATION
  Report Type: 
  Country: None (occurrence: None)
  Receive Date: 20110301
  Receipt Date: 20110218
  Transmission Date: 20110831
  Serious: Yes (Hospitalization)
  Sender: FDA-Public Use
  Company Number: 027752

PATIENT
  Age: 59 Year
  Sex: Female
  Weight: 63 kg

DRUGS (7)
  1. METHOTREXATE [Concomitant]
  2. METHYLPREDNISOLONE [Concomitant]
  3. CALCIUM CARBONATE [Concomitant]
  4. CIMZIA [Suspect]
     Indication: RHEUMATOID ARTHRITIS
     Dosage: (200 MG 1X/2 WEEKS SUBCUTANEOUS)
     Route: 058
     Dates: start: 20090318, end: 20110217
  5. PRITOR /01506701/ [Concomitant]
  6. LEKADOL [Concomitant]
  7. ROCALTROL [Concomitant]

REACTIONS (5)
  - RASH [None]
  - BLISTER [None]
  - HYPERSENSITIVITY [None]
  - ASPHYXIA [None]
  - PRURITUS [None]
